FAERS Safety Report 18517149 (Version 8)
Quarter: 2022Q1

REPORT INFORMATION
  Report Type: Report from Study
  Country: US (occurrence: US)
  Receive Date: 20201118
  Receipt Date: 20220115
  Transmission Date: 20220424
  Serious: Yes (Hospitalization, Other)
  Sender: FDA-Public Use
  Company Number: US-SHIRE-US202019753

PATIENT
  Sex: Female

DRUGS (1)
  1. HUMAN IMMUNOGLOBULIN G [Suspect]
     Active Substance: HUMAN IMMUNOGLOBULIN G
     Indication: Hypogammaglobulinaemia
     Dosage: UNK
     Route: 042

REACTIONS (19)
  - Myasthenia gravis [Unknown]
  - Device related infection [Unknown]
  - Muscle spasms [Unknown]
  - Pericardial effusion [Unknown]
  - Autoimmune disorder [Unknown]
  - Cataract [Unknown]
  - Endocarditis [Unknown]
  - Restless legs syndrome [Unknown]
  - Condition aggravated [Unknown]
  - Illness [Unknown]
  - Pain [Unknown]
  - Rash [Unknown]
  - Upper respiratory tract infection [Unknown]
  - Lymphoedema [Unknown]
  - Asthma [Unknown]
  - Blood immunoglobulin M decreased [Unknown]
  - Device issue [Unknown]
  - Fistula [Unknown]
  - Feeling abnormal [Unknown]
